FAERS Safety Report 5115933-0 (Version None)
Quarter: 2006Q3

REPORT INFORMATION
  Report Type: 
  Country: None (occurrence: None)
  Receive Date: 20060927
  Receipt Date: 20051013
  Transmission Date: 20061208
  Serious: No
  Sender: FDA-Public Use
  Company Number: US-BRISTOL-MYERS SQUIBB COMPANY-13145545

PATIENT
  Age: 44 Year
  Sex: Male
  Weight: 190 kg

DRUGS (1)
  1. DEFINITY [Suspect]
     Indication: ECHOCARDIOGRAM
     Route: 042
     Dates: start: 20051013, end: 20051013

REACTIONS (2)
  - ARTHRALGIA [None]
  - HEADACHE [None]
